FAERS Safety Report 17445296 (Version 2)
Quarter: 2020Q3

REPORT INFORMATION
  Report Type: Spontaneous
  Country: US (occurrence: US)
  Receive Date: 20200221
  Receipt Date: 20200909
  Transmission Date: 20201102
  Serious: Yes (Hospitalization, Other)
  Sender: FDA-Public Use
  Company Number: US-SUNOVION-2020SUN000594

PATIENT
  Age: 79 Year
  Sex: Female

DRUGS (1)
  1. LONHALA MAGNAIR [Suspect]
     Active Substance: GLYCOPYRROLATE
     Dosage: 25 ?G
     Route: 055

REACTIONS (6)
  - Device malfunction [Unknown]
  - Blindness [Unknown]
  - Surgery [Unknown]
  - Therapy cessation [Unknown]
  - Device issue [Unknown]
  - Incorrect dose administered [Unknown]
